FAERS Safety Report 11342412 (Version 1)
Quarter: 2015Q3

REPORT INFORMATION
  Report Type: Spontaneous
  Country: IT (occurrence: IT)
  Receive Date: 20150805
  Receipt Date: 20150805
  Transmission Date: 20151125
  Serious: Yes (Death, Hospitalization, Other)
  Sender: FDA-Public Use
  Company Number: IT-BAYER-2015-392010

PATIENT
  Age: 10 Month
  Sex: Female

DRUGS (1)
  1. ACETYLSALICYLIC ACID (} 100 MG) [Suspect]
     Active Substance: ASPIRIN
     Indication: INFLUENZA

REACTIONS (5)
  - Cardiomyopathy [None]
  - Pulmonary oedema [None]
  - Pneumonia [None]
  - Multi-organ failure [Fatal]
  - Reye^s syndrome [Fatal]
